FAERS Safety Report 19909793 (Version 1)
Quarter: 2021Q4

REPORT INFORMATION
  Report Type: Other
  Country: PL (occurrence: PL)
  Receive Date: 20211003
  Receipt Date: 20211003
  Transmission Date: 20220303
  Serious: Yes (Other)
  Sender: FDA-Public Use
  Company Number: PL-APOTEX-2009AP003739

PATIENT
  Age: 58 Year
  Sex: Female

DRUGS (4)
  1. MYCOPHENOLATE MOFETIL [Suspect]
     Active Substance: MYCOPHENOLATE MOFETIL
     Indication: Product used for unknown indication
     Route: 065
  2. TACROLIMUS [Suspect]
     Active Substance: TACROLIMUS
     Indication: Product used for unknown indication
     Route: 065
  3. PREDNISOLONE [Suspect]
     Active Substance: PREDNISOLONE
     Indication: Product used for unknown indication
     Route: 065
  4. THYMOCYTE IMMUNE GLOBULIN NOS [Concomitant]
     Active Substance: THYMOCYTE IMMUNE GLOBULIN NOS
     Indication: Product used for unknown indication
     Route: 065

REACTIONS (17)
  - Apathy [Recovered/Resolved]
  - Paraesthesia [Recovered/Resolved]
  - Hyperproteinaemia [Recovered/Resolved]
  - Mood swings [Recovered/Resolved]
  - Nystagmus [Recovered/Resolved]
  - Nausea [Recovered/Resolved]
  - Hypergammaglobulinaemia [Recovered/Resolved]
  - Vertigo [Recovered/Resolved]
  - Urinary incontinence [Recovered/Resolved]
  - Bedridden [Recovered/Resolved]
  - Anal incontinence [Recovered/Resolved]
  - Somnolence [Recovered/Resolved]
  - Pleocytosis [Recovered/Resolved]
  - Diplopia [Recovered/Resolved]
  - Memory impairment [Recovered/Resolved]
  - Disorientation [Recovered/Resolved]
  - Progressive multifocal leukoencephalopathy [Recovered/Resolved]
